FAERS Safety Report 9639726 (Version 2)
Quarter: 2013Q4

REPORT INFORMATION
  Report Type: Report from Study
  Country: US (occurrence: US)
  Receive Date: 20131023
  Receipt Date: 20131023
  Transmission Date: 20140711
  Serious: Yes (Death, Life-Threatening, Hospitalization)
  Sender: FDA-Public Use
  Company Number: US-BRISTOL-MYERS SQUIBB COMPANY-19456185

PATIENT
  Age: 64 Year
  Sex: Male
  Weight: 69.6 kg

DRUGS (9)
  1. MDX-1338 [Suspect]
     Indication: ACUTE MYELOID LEUKAEMIA
     Dosage: DAYS 1,8,15
     Route: 042
     Dates: start: 20130909, end: 20130923
  2. ETOPOSIDE [Suspect]
     Indication: ACUTE MYELOID LEUKAEMIA
     Dates: start: 201308, end: 20130913
  3. MITOXANTRONE [Suspect]
     Indication: ACUTE MYELOID LEUKAEMIA
     Dates: start: 201308, end: 20130913
  4. CYTARABINE [Suspect]
     Indication: ACUTE MYELOID LEUKAEMIA
     Dosage: D1-5
     Dates: start: 201308, end: 20130913
  5. CIPROFLOXACIN [Concomitant]
     Route: 048
  6. METOPROLOL [Concomitant]
     Route: 048
  7. VORICONAZOLE [Concomitant]
     Route: 048
  8. SULFAMETHOXAZOLE + TRIMETHOPRIM [Concomitant]
     Dosage: 1DF: 1TAB
     Route: 048
  9. VALACYCLOVIR [Concomitant]
     Route: 048

REACTIONS (6)
  - Malignant neoplasm progression [Fatal]
  - Neutropenia [Unknown]
  - Septic shock [Recovering/Resolving]
  - Mucosal inflammation [Recovering/Resolving]
  - Cardiac failure acute [Unknown]
  - Cholecystitis [Unknown]
